FAERS Safety Report 8949118 (Version 1)
Quarter: 2012Q4

REPORT INFORMATION
  Report Type: 
  Country: DE (occurrence: DE)
  Receive Date: 20121206
  Receipt Date: 20121206
  Transmission Date: 20130627
  Serious: Yes (Other)
  Sender: FDA-Public Use
  Company Number: DE-PFIZER INC-2012303299

PATIENT
  Age: 65 Year
  Sex: Male

DRUGS (6)
  1. SUTENT [Suspect]
     Indication: RENAL CELL CARCINOMA
     Dosage: 50 mg, 4/2 scheme
     Dates: start: 200705
  2. SUTENT [Suspect]
     Indication: METASTASES TO LIVER
     Dosage: 35.7 mg, UNK
  3. SUTENT [Suspect]
     Indication: MEDIASTINAL METASTASES
     Dosage: 25 mg, (4/2)
     Dates: start: 200807
  4. SUTENT [Suspect]
     Dosage: 37.5 mg, (4/2)
  5. SUTENT [Suspect]
     Dosage: 25 mg, (4/2)
     Dates: start: 201002
  6. SUTENT [Suspect]
     Dosage: 37.5 mg, (4/2)

REACTIONS (3)
  - Palmar-plantar erythrodysaesthesia syndrome [Unknown]
  - Toe amputation [Unknown]
  - Dysgeusia [Unknown]
